FAERS Safety Report 8197493-3 (Version None)
Quarter: 2012Q1

REPORT INFORMATION
  Report Type: 
  Country: None (occurrence: None)
  Receive Date: 20120309
  Receipt Date: 20120306
  Transmission Date: 20120608
  Serious: Yes (Hospitalization)
  Sender: FDA-Public Use
  Company Number: IT-BAYER-2012-013862

PATIENT
  Age: 90 Year
  Sex: Female

DRUGS (4)
  1. OMEPRAZOLE [Suspect]
     Dosage: DAILY DOSE 20 MG
     Route: 048
     Dates: start: 20100201, end: 20120214
  2. MINITRAN [Concomitant]
     Dosage: 1 DF, QD
     Route: 062
  3. ASPIRIN [Suspect]
     Indication: PROPHYLAXIS
     Dosage: 100 MG, QD
     Route: 048
     Dates: start: 20090101, end: 20120205
  4. VALSARTAN [Concomitant]
     Dosage: DAILY DOSE 20 MG
     Route: 048

REACTIONS (2)
  - EPISTAXIS [None]
  - THROMBOCYTOPENIA [None]
